FAERS Safety Report 22154176 (Version 1)
Quarter: 2023Q1

REPORT INFORMATION
  Report Type: Spontaneous
  Country: US (occurrence: None)
  Receive Date: 20230330
  Receipt Date: 20230330
  Transmission Date: 20230418
  Serious: No
  Sender: FDA-Public Use
  Company Number: 2023A074001

PATIENT
  Age: 920 Month
  Sex: Female

DRUGS (1)
  1. SYMBICORT [Suspect]
     Active Substance: BUDESONIDE\FORMOTEROL FUMARATE DIHYDRATE
     Indication: Asthma
     Dosage: 80/4.5MCG TWO PUFFS TWICE A DAY
     Route: 055
     Dates: start: 202303

REACTIONS (4)
  - Dry mouth [Recovered/Resolved]
  - Product dose omission issue [Not Recovered/Not Resolved]
  - Device use issue [Recovered/Resolved]
  - Device delivery system issue [Unknown]

NARRATIVE: CASE EVENT DATE: 20230301
